FAERS Safety Report 12584387 (Version 1)
Quarter: 2016Q3

REPORT INFORMATION
  Report Type: Spontaneous
  Country: RO (occurrence: RO)
  Receive Date: 20160722
  Receipt Date: 20160722
  Transmission Date: 20161109
  Serious: Yes (Other)
  Sender: FDA-Public Use
  Company Number: RO-GLAXOSMITHKLINE-RO2016GSK099494

PATIENT
  Sex: Female

DRUGS (1)
  1. SERETIDE [Suspect]
     Active Substance: FLUTICASONE PROPIONATE\SALMETEROL XINAFOATE
     Indication: PRODUCT USED FOR UNKNOWN INDICATION

REACTIONS (13)
  - Pruritus [Unknown]
  - Abdominal distension [Unknown]
  - Myalgia [Unknown]
  - Hypoaesthesia [Unknown]
  - Hypersensitivity [Unknown]
  - Melanocytic naevus [Unknown]
  - Amnesia [Unknown]
  - Palpitations [Unknown]
  - Dyspnoea [Unknown]
  - Pain of skin [Unknown]
  - Asphyxia [Unknown]
  - Fatigue [Unknown]
  - Eye disorder [Unknown]
